FAERS Safety Report 8050185-3 (Version None)
Quarter: 2011Q4

REPORT INFORMATION
  Report Type: 
  Country: None (occurrence: None)
  Receive Date: 20111212
  Receipt Date: 20110815
  Transmission Date: 20120403
  Serious: Yes (Other)
  Sender: FDA-Public Use
  Company Number: PHHY2010US68431

PATIENT
  Age: 42 Year
  Sex: Female

DRUGS (17)
  1. SINGULAIR [Concomitant]
  2. VITAMIN B12 (CYCANOCOBALAMIN) [Concomitant]
  3. ALBUTEROL [Concomitant]
  4. NALTREXONE HYDROCHLORIDE [Concomitant]
  5. EFFEXOR [Concomitant]
  6. SYNTHROID [Concomitant]
  7. EXTAVIA [Suspect]
     Indication: MULTIPLE SCLEROSIS
     Dosage: 0.25MG, QOD, SUBCUTANEOUS
     Route: 058
     Dates: start: 20100818
  8. TRAMADOL HCL [Concomitant]
  9. MULTIVITAMINS (ASCORBIC ACID, ERGOCALCIFEROL, FOLIC ACID, NICOTINAMIDE [Concomitant]
  10. STEROID (NO INGREDIENTS/SUBSTANCES) [Concomitant]
  11. VITAMIN D [Concomitant]
  12. MECLIZINE [Concomitant]
  13. ZYRTEC [Concomitant]
  14. ZETIA [Concomitant]
  15. TOPROL-XL [Concomitant]
  16. CALCIUM CARBONATE [Concomitant]
  17. LORTAB [Concomitant]

REACTIONS (7)
  - GAIT DISTURBANCE [None]
  - INJECTION SITE SWELLING [None]
  - INJECTION SITE VESICLES [None]
  - INJECTION SITE DISCOLOURATION [None]
  - MULTIPLE SCLEROSIS [None]
  - INJECTION SITE ERYTHEMA [None]
  - INJECTION SITE REACTION [None]
